FAERS Safety Report 24873240 (Version 1)
Quarter: 2025Q1

REPORT INFORMATION
  Report Type: Spontaneous
  Country: BR (occurrence: BR)
  Receive Date: 20250122
  Receipt Date: 20250122
  Transmission Date: 20250409
  Serious: Yes (Hospitalization, Other)
  Sender: UCB
  Company Number: BR-UCBSA-2025002707

PATIENT
  Sex: Male

DRUGS (4)
  1. KEPPRA [Suspect]
     Active Substance: LEVETIRACETAM
     Indication: Seizure
     Dosage: 2 MILLILITER, 2X/DAY (BID)
     Dates: start: 202408
  2. KEPPRA [Suspect]
     Active Substance: LEVETIRACETAM
  3. KEPPRA [Suspect]
     Active Substance: LEVETIRACETAM
  4. BACLOFEN [Concomitant]
     Active Substance: BACLOFEN
     Indication: Nervous system disorder
     Dates: start: 202408

REACTIONS (5)
  - Drowning [Unknown]
  - Coma [Unknown]
  - Muscle spasms [Unknown]
  - Somnolence [Unknown]
  - Overdose [Unknown]
